FAERS Safety Report 8462572-X (Version None)
Quarter: 2012Q2

REPORT INFORMATION
  Report Type: 
  Country: None (occurrence: None)
  Receive Date: 20120619
  Receipt Date: 20120619
  Transmission Date: 20120825
  Serious: Yes (Death)
  Sender: FDA-Public Use
  Company Number: None

PATIENT
  Sex: Female
  Weight: 98.6 kg

DRUGS (2)
  1. DOCETAXEL [Suspect]
     Dosage: 97.5 MG (50 MG/M2) Q21 DAYS IV
     Route: 042
     Dates: start: 20120521
  2. DOCTAXEL 20MG/ML WINTHROP US [Suspect]
     Indication: BREAST CANCER
     Dosage: 109 MG (56.6MG/M2) Q21 DAYS IV
     Route: 042
     Dates: start: 20120430

REACTIONS (2)
  - SKIN EXFOLIATION [None]
  - MULTI-ORGAN FAILURE [None]
